FAERS Safety Report 10174809 (Version 2)
Quarter: 2014Q2

REPORT INFORMATION
  Report Type: Spontaneous
  Country: US (occurrence: None)
  Receive Date: 20140416
  Receipt Date: 20140604
  Transmission Date: 20141212
  Serious: Yes (Disabling)
  Sender: FDA-Public Use
  Company Number: 163-POMAL-14014659

PATIENT
  Age: 82 Year
  Sex: Male

DRUGS (3)
  1. POMALYST [Suspect]
     Indication: PLASMA CELL MYELOMA
     Dosage: 3 MG, 14 IN 14 D, PO?PERMANENTLY DISCONTINUED
     Route: 048
     Dates: start: 20130808
  2. FOLIC ACID (FOLIC ACID) [Concomitant]
  3. VITAMIN D3 (COLECALCIFEROL) [Concomitant]

REACTIONS (1)
  - Drug ineffective [None]
